FAERS Safety Report 4482523-2 (Version None)
Quarter: 2004Q4

REPORT INFORMATION
  Report Type: 
  Country: None (occurrence: None)
  Receive Date: 20041022
  Receipt Date: 20040730
  Transmission Date: 20050328
  Serious: No
  Sender: FDA-Public Use
  Company Number: US-GLAXOSMITHKLINE-A0520386A

PATIENT
  Age: 48 Year
  Sex: Female

DRUGS (7)
  1. LEXIVA [Suspect]
     Indication: HIV INFECTION
     Dosage: 700MG TWICE PER DAY
     Route: 048
     Dates: start: 20040301, end: 20040701
  2. COMBIVIR [Suspect]
     Indication: ILL-DEFINED DISORDER
  3. NORVIR [Concomitant]
  4. PAXIL [Concomitant]
  5. ZYPREXA [Concomitant]
  6. MEPRON [Concomitant]
  7. ANTI-HISTAMINE TAB [Concomitant]

REACTIONS (3)
  - HAEMOGLOBIN DECREASED [None]
  - RASH GENERALISED [None]
  - WHITE BLOOD CELL COUNT DECREASED [None]
